FAERS Safety Report 5368646-4 (Version None)
Quarter: 2007Q2

REPORT INFORMATION
  Report Type: 
  Country: None (occurrence: None)
  Receive Date: 20070625
  Receipt Date: 20070614
  Transmission Date: 20071010
  Serious: Yes (Other)
  Sender: FDA-Public Use
  Company Number: JP-SP-2007-00418

PATIENT
  Age: 58 Year
  Sex: Male

DRUGS (3)
  1. IMMUCYST [Suspect]
     Indication: BLADDER CANCER
     Route: 043
     Dates: start: 20060922, end: 20061130
  2. IMMUCYST [Suspect]
     Route: 043
     Dates: start: 20060922, end: 20061130
  3. IMMUCYST [Suspect]
     Route: 043
     Dates: start: 20060922, end: 20061130

REACTIONS (4)
  - CONTRACTED BLADDER [None]
  - HAEMATURIA [None]
  - POLLAKIURIA [None]
  - PYURIA [None]
